FAERS Safety Report 6317678-8 (Version None)
Quarter: 2009Q3

REPORT INFORMATION
  Report Type: 
  Country: None (occurrence: None)
  Receive Date: 20090821
  Receipt Date: 20090813
  Transmission Date: 20100115
  Serious: Yes (Other)
  Sender: FDA-Public Use
  Company Number: PHHY2009NL33934

PATIENT
  Sex: Male

DRUGS (1)
  1. DIOVAN [Suspect]
     Dosage: 80 MG, UNK
     Dates: start: 19990101

REACTIONS (4)
  - ARRHYTHMIA [None]
  - FLUID RETENTION [None]
  - URINE FLOW DECREASED [None]
  - URINE OUTPUT DECREASED [None]
